FAERS Safety Report 5528155-6 (Version None)
Quarter: 2007Q4

REPORT INFORMATION
  Report Type: 
  Country: None (occurrence: None)
  Receive Date: 20071128
  Receipt Date: 20071116
  Transmission Date: 20080405
  Serious: Yes (Hospitalization)
  Sender: FDA-Public Use
  Company Number: IT-PFIZER INC-2007097136

PATIENT
  Sex: Female

DRUGS (3)
  1. ZOLOFT [Suspect]
     Indication: DEPRESSION
     Route: 048
     Dates: start: 20061114, end: 20071111
  2. ALLOPURINOL [Suspect]
     Indication: HYPERURICAEMIA
     Route: 048
     Dates: start: 20061114, end: 20071111
  3. BLOPRESID [Suspect]
     Indication: HYPERTENSION
     Route: 048
     Dates: start: 20061114, end: 20071111

REACTIONS (1)
  - ERYTHRODERMIC PSORIASIS [None]
